FAERS Safety Report 10258364 (Version 1)
Quarter: 2014Q2

REPORT INFORMATION
  Report Type: Spontaneous
  Country: GB (occurrence: GB)
  Receive Date: 20140625
  Receipt Date: 20140625
  Transmission Date: 20141212
  Serious: Yes (Life-Threatening, Hospitalization)
  Sender: FDA-Public Use
  Company Number: GB-PFIZER INC-2014171371

PATIENT
  Age: 19 Year
  Sex: Male
  Weight: 117 kg

DRUGS (3)
  1. SERTRALINE HCL [Suspect]
     Indication: DEPRESSION
     Dosage: 50 MG, UNK
     Route: 048
     Dates: start: 20140410, end: 201404
  2. SERTRALINE HCL [Suspect]
     Dosage: 100 MG, UNK
     Dates: start: 201404, end: 2014
  3. SERTRALINE HCL [Suspect]
     Dosage: 150 MG, UNK
     Dates: start: 2014, end: 2014

REACTIONS (2)
  - Intentional overdose [Not Recovered/Not Resolved]
  - Suicide attempt [Not Recovered/Not Resolved]
